FAERS Safety Report 17243747 (Version 1)
Quarter: 2020Q1

REPORT INFORMATION
  Report Type: Spontaneous
  Country: US (occurrence: US)
  Receive Date: 20200107
  Receipt Date: 20200107
  Transmission Date: 20200409
  Serious: No
  Sender: FDA-Public Use
  Company Number: US-ROCHE-2314549

PATIENT
  Age: 85 Year
  Sex: Male

DRUGS (1)
  1. ALTEPLASE. [Suspect]
     Active Substance: ALTEPLASE
     Indication: SUBDURAL HAEMATOMA
     Route: 050

REACTIONS (3)
  - No adverse event [Unknown]
  - Product use issue [Unknown]
  - Off label use [Unknown]
